FAERS Safety Report 23288087 (Version 1)
Quarter: 2023Q4

REPORT INFORMATION
  Report Type: Spontaneous
  Country: CN (occurrence: CN)
  Receive Date: 20231212
  Receipt Date: 20231212
  Transmission Date: 20240110
  Serious: Yes (Other)
  Sender: FDA-Public Use
  Company Number: CN-PFIZER INC-PV202300198612

PATIENT
  Age: 70 Year
  Sex: Male

DRUGS (4)
  1. IRINOTECAN HYDROCHLORIDE [Suspect]
     Active Substance: IRINOTECAN HYDROCHLORIDE
     Indication: Chemotherapy
     Dosage: 0.29 G, 1X/DAY
     Route: 041
     Dates: start: 20231115, end: 20231115
  2. CREATINE [Concomitant]
     Active Substance: CREATINE
     Indication: Chemotherapy
     Dosage: 1 G, 1X/DAY
     Route: 041
     Dates: start: 20231115, end: 20231115
  3. GLUTATHIONE [Concomitant]
     Active Substance: GLUTATHIONE
     Indication: Chemotherapy
     Dosage: 1.8 G, 1X/DAY
     Route: 041
     Dates: start: 20231115, end: 20231115
  4. ONDANSETRON HYDROCHLORIDE [Concomitant]
     Active Substance: ONDANSETRON HYDROCHLORIDE
     Indication: Chemotherapy
     Dosage: 4 MG, 1X/DAY
     Route: 041
     Dates: start: 20231115, end: 20231115

REACTIONS (9)
  - Myelosuppression [Recovering/Resolving]
  - Agranulocytosis [Unknown]
  - Pyrexia [Unknown]
  - Diarrhoea [Not Recovered/Not Resolved]
  - Hypotension [Unknown]
  - Nausea [Unknown]
  - Vomiting [Unknown]
  - Discomfort [Not Recovered/Not Resolved]
  - Platelet count decreased [Recovered/Resolved]

NARRATIVE: CASE EVENT DATE: 20231122
